FAERS Safety Report 20762597 (Version 2)
Quarter: 2022Q2

REPORT INFORMATION
  Report Type: Spontaneous
  Country: US (occurrence: US)
  Receive Date: 20220428
  Receipt Date: 20220502
  Transmission Date: 20220721
  Serious: No
  Sender: FDA-Public Use
  Company Number: US-ALKERMES INC.-ALK-2022-001992

PATIENT
  Age: 28 Year
  Sex: Male
  Weight: 72.562 kg

DRUGS (4)
  1. VIVITROL [Suspect]
     Active Substance: NALTREXONE
     Indication: Alcoholism
     Dosage: 380 MILLIGRAM, QMO
     Route: 030
     Dates: start: 202204
  2. VIVITROL [Suspect]
     Active Substance: NALTREXONE
     Dosage: 380 MILLIGRAM, QMO
     Route: 030
     Dates: start: 20210623, end: 20210623
  3. VIVITROL [Suspect]
     Active Substance: NALTREXONE
     Dosage: 380 MILLIGRAM, QMO
     Route: 030
     Dates: start: 20210428, end: 20210428
  4. GABAPENTIN [Concomitant]
     Active Substance: GABAPENTIN
     Indication: Product used for unknown indication
     Dosage: UNK UNK, Q8H
     Route: 065

REACTIONS (41)
  - Monoplegia [Not Recovered/Not Resolved]
  - Gait disturbance [Not Recovered/Not Resolved]
  - Muscle injury [Unknown]
  - Tissue injury [Unknown]
  - Sciatic nerve injury [Unknown]
  - Vessel perforation [Unknown]
  - Inflammation [Unknown]
  - Contusion [Unknown]
  - Scab [Unknown]
  - Necrosis [Unknown]
  - Erectile dysfunction [Unknown]
  - Haematospermia [Unknown]
  - Dysuria [Unknown]
  - Nocturia [Unknown]
  - Haematoma [Unknown]
  - Limb discomfort [Unknown]
  - Oedema [Unknown]
  - Nerve injury [Unknown]
  - Pain [Unknown]
  - Limb injury [Not Recovered/Not Resolved]
  - Muscle tightness [Unknown]
  - Hypersensitivity [Unknown]
  - Hypoaesthesia [Unknown]
  - Paraesthesia [Unknown]
  - Insomnia [Unknown]
  - Fatigue [Unknown]
  - Decreased appetite [Unknown]
  - Arthralgia [Unknown]
  - Abdominal pain upper [Unknown]
  - Weight decreased [Unknown]
  - Rash [Recovering/Resolving]
  - Night sweats [Recovered/Resolved]
  - Constipation [Recovered/Resolved]
  - Pain in extremity [Not Recovered/Not Resolved]
  - Injection site reaction [Unknown]
  - Injection site rash [Unknown]
  - Injection site injury [Unknown]
  - Injection site haemorrhage [Unknown]
  - Injection site mass [Unknown]
  - Injection site necrosis [Unknown]
  - Injection site pain [Not Recovered/Not Resolved]

NARRATIVE: CASE EVENT DATE: 20210428
